FAERS Safety Report 5825800-2 (Version None)
Quarter: 2008Q3

REPORT INFORMATION
  Report Type: 
  Country: None (occurrence: None)
  Receive Date: 20080729
  Receipt Date: 20080717
  Transmission Date: 20090109
  Serious: Yes (Hospitalization)
  Sender: FDA-Public Use
  Company Number: DE-WYE-H05187508

PATIENT
  Sex: Male

DRUGS (1)
  1. CORDAREX [Suspect]
     Indication: VENTRICULAR TACHYCARDIA
     Route: 048
     Dates: start: 19990101, end: 20080410

REACTIONS (4)
  - DRUG EFFECT DECREASED [None]
  - HAEMOPTYSIS [None]
  - ORGANISING PNEUMONIA [None]
  - WEIGHT DECREASED [None]
